FAERS Safety Report 5768293-6 (Version None)
Quarter: 2008Q2

REPORT INFORMATION
  Report Type: 
  Country: None (occurrence: None)
  Receive Date: 20080612
  Receipt Date: 20080604
  Transmission Date: 20081010
  Serious: Yes (Hospitalization)
  Sender: FDA-Public Use
  Company Number: US-AMGEN-QUU284893

PATIENT
  Sex: Female

DRUGS (2)
  1. ENBREL [Suspect]
     Indication: RHEUMATOID ARTHRITIS
     Route: 058
     Dates: start: 20070601
  2. METHOTREXATE [Concomitant]
     Route: 058

REACTIONS (6)
  - ABDOMINAL DISCOMFORT [None]
  - FLATULENCE [None]
  - GALLBLADDER OPERATION [None]
  - INJECTION SITE PAIN [None]
  - NEPHROLITHIASIS [None]
  - PANCREATITIS [None]
